FAERS Safety Report 18665836 (Version 1)
Quarter: 2020Q4

REPORT INFORMATION
  Report Type: Spontaneous
  Country: GB (occurrence: GB)
  Receive Date: 20201226
  Receipt Date: 20201226
  Transmission Date: 20210114
  Serious: Yes (Other)
  Sender: FDA-Public Use
  Company Number: GB-TEVA-2020-GB-1861687

PATIENT
  Age: 45 Year
  Sex: Female
  Weight: 73.93 kg

DRUGS (4)
  1. BOOTS IBUPROFEN [Concomitant]
  2. NITROFURANTOIN. [Concomitant]
     Active Substance: NITROFURANTOIN
  3. AMOXICILLIN. [Concomitant]
     Active Substance: AMOXICILLIN
  4. CLARITHROMYCIN CITRATE [Suspect]
     Active Substance: CLARITHROMYCIN CITRATE
     Indication: SINUSITIS
     Dosage: 1500 MG
     Route: 048
     Dates: start: 20201124, end: 20201126

REACTIONS (4)
  - Chills [Recovered/Resolved]
  - Arthralgia [Recovered/Resolved with Sequelae]
  - Fatigue [Recovered/Resolved]
  - Myalgia [Recovered/Resolved]

NARRATIVE: CASE EVENT DATE: 20201124
